FAERS Safety Report 15214139 (Version 1)
Quarter: 2018Q4

REPORT INFORMATION
  Report Type: Spontaneous
  Country: US (occurrence: US)
  Receive Date: 20180730
  Receipt Date: 20180730
  Transmission Date: 20190204
  Serious: No
  Sender: FDA-Public Use
  Company Number: US-SA-2018SA177703

PATIENT
  Sex: Male

DRUGS (1)
  1. ASPERCREME PAIN RELIEVING [Suspect]
     Active Substance: TROLAMINE SALICYLATE

REACTIONS (3)
  - Suspected counterfeit product [Unknown]
  - Urticaria [Recovered/Resolved]
  - Rash [Recovered/Resolved]
